FAERS Safety Report 8866504 (Version 1)
Quarter: 2012Q4

REPORT INFORMATION
  Report Type: 
  Country: DE (occurrence: DE)
  Receive Date: 20121025
  Receipt Date: 20121025
  Transmission Date: 20130627
  Serious: Yes (Other)
  Sender: FDA-Public Use
  Company Number: DE-B.I. PHARMACEUTICALS,INC./RIDGEFIELD-2012-EU-05283GD

PATIENT

DRUGS (2)
  1. RANITIDINE [Suspect]
  2. FLUPIRTINE [Suspect]

REACTIONS (1)
  - Acute hepatic failure [Unknown]
